FAERS Safety Report 9509365 (Version 1)
Quarter: 2013Q3

REPORT INFORMATION
  Report Type: Spontaneous
  Country: US (occurrence: US)
  Receive Date: 20130909
  Receipt Date: 20130909
  Transmission Date: 20140515
  Serious: Yes (Other)
  Sender: FDA-Public Use
  Company Number: US-BRISTOL-MYERS SQUIBB COMPANY-18987958

PATIENT
  Sex: Female

DRUGS (5)
  1. ABILIFY [Suspect]
  2. GEODON [Suspect]
  3. DEPAKOTE [Suspect]
  4. ZYPREXA [Suspect]
  5. INVEGA [Suspect]

REACTIONS (5)
  - Convulsion [Unknown]
  - Hypertension [Unknown]
  - Diabetes mellitus [Unknown]
  - Somnolence [Unknown]
  - Weight increased [Unknown]
